FAERS Safety Report 20787420 (Version 10)
Quarter: 2025Q4

REPORT INFORMATION
  Report Type: Spontaneous
  Country: US (occurrence: US)
  Receive Date: 20220505
  Receipt Date: 20251202
  Transmission Date: 20260118
  Serious: No
  Sender: CSL BEHRING
  Company Number: US-BEH-2022145089

PATIENT
  Age: 18 Year
  Sex: Male

DRUGS (16)
  1. PRIVIGEN [Suspect]
     Active Substance: HUMAN IMMUNOGLOBULIN G
     Indication: Immunodeficiency common variable
     Dosage: 60 GRAM, QMT
     Route: 042
     Dates: start: 20200212
  2. PRIVIGEN [Suspect]
     Active Substance: HUMAN IMMUNOGLOBULIN G
     Indication: Dermatitis atopic
     Dosage: 60 GRAM, QMT
     Route: 042
     Dates: start: 202002
  3. PRIVIGEN [Suspect]
     Active Substance: HUMAN IMMUNOGLOBULIN G
     Dosage: 20 GRAM, QMT
     Route: 042
     Dates: start: 20220203
  4. PRIVIGEN [Suspect]
     Active Substance: HUMAN IMMUNOGLOBULIN G
     Dosage: UNK
     Route: 065
  5. DUPIXENT [Suspect]
     Active Substance: DUPILUMAB
     Indication: Immunodeficiency common variable
     Dosage: 300 MILLIGRAM, QOW
     Route: 058
     Dates: start: 202205
  6. DUPIXENT [Suspect]
     Active Substance: DUPILUMAB
     Indication: Dermatitis atopic
     Dosage: 300 MILLIGRAM, QOW
     Route: 058
     Dates: start: 202206
  7. WEGOVY [Suspect]
     Active Substance: SEMAGLUTIDE
     Indication: Weight decreased
     Route: 065
  8. DIPHENHYDRAMINE [Concomitant]
     Active Substance: DIPHENHYDRAMINE
     Indication: Hypersensitivity
  9. DIPHENHYDRAMINE [Concomitant]
     Active Substance: DIPHENHYDRAMINE
     Indication: Hypersensitivity
  10. METHYLPREDNISOLONE SODIUM SUCCINATE [Concomitant]
     Active Substance: METHYLPREDNISOLONE SODIUM SUCCINATE
  11. NEMLUVIO [Concomitant]
     Active Substance: NEMOLIZUMAB-ILTO
  12. HUMIRA [Concomitant]
     Active Substance: ADALIMUMAB
  13. EBGLYSS [Concomitant]
     Active Substance: LEBRIKIZUMAB-LBKZ
  14. SODIUM CHLORIDE [Concomitant]
     Active Substance: SODIUM CHLORIDE
     Dosage: 500 ML
  15. BACTERIOSTATIC WATER [Concomitant]
     Active Substance: WATER
  16. SODIUM CHLORIDE [Concomitant]
     Active Substance: SODIUM CHLORIDE
     Dosage: 5 ML

REACTIONS (17)
  - Headache [Unknown]
  - Headache [Unknown]
  - Off label use [Unknown]
  - Headache [Unknown]
  - Weight increased [Unknown]
  - Headache [Unknown]
  - Headache [Unknown]
  - Headache [Unknown]
  - Weight increased [Unknown]
  - Joint swelling [Unknown]
  - Peripheral swelling [Unknown]
  - Peripheral swelling [Unknown]
  - Headache [Unknown]
  - Decreased appetite [Unknown]
  - Headache [Unknown]
  - Sensitive skin [Unknown]
  - Erythema [Unknown]

NARRATIVE: CASE EVENT DATE: 20220501
